FAERS Safety Report 21818343 (Version 1)
Quarter: 2023Q1

REPORT INFORMATION
  Report Type: Spontaneous
  Country: US (occurrence: US)
  Receive Date: 20230104
  Receipt Date: 20230104
  Transmission Date: 20230417
  Serious: Yes (Other)
  Sender: FDA-Public Use
  Company Number: US-COOPERSURGICAL, INC.-US-2022CPS002271

PATIENT
  Age: 24 Year
  Sex: Female

DRUGS (3)
  1. PARAGARD T 380A [Suspect]
     Active Substance: COPPER
     Indication: Product used for unknown indication
     Dosage: UNK
     Route: 015
     Dates: start: 20220628
  2. MULTIVITAMIN GUMMY BEARS [Concomitant]
     Indication: Product used for unknown indication
     Dosage: UNK
     Route: 065
  3. VITAMIN C FORMULA [Concomitant]
     Indication: Product used for unknown indication
     Route: 065

REACTIONS (12)
  - Pyrexia [Recovered/Resolved]
  - Chromaturia [Unknown]
  - Dysuria [Unknown]
  - Sinus congestion [Not Recovered/Not Resolved]
  - Procedural pain [Recovered/Resolved]
  - Oropharyngeal pain [Recovering/Resolving]
  - Nasopharyngitis [Not Recovered/Not Resolved]
  - Feeling hot [Unknown]
  - Feeling cold [Unknown]
  - Chills [Unknown]
  - Pain [Recovering/Resolving]
  - Influenza like illness [Recovered/Resolved]

NARRATIVE: CASE EVENT DATE: 20220628
